FAERS Safety Report 5200832-6 (Version None)
Quarter: 2007Q1

REPORT INFORMATION
  Report Type: 
  Country: None (occurrence: None)
  Receive Date: 20070108
  Receipt Date: 20061229
  Transmission Date: 20070707
  Serious: Yes (Other)
  Sender: FDA-Public Use
  Company Number: BR-JNJFOC-20070100201

PATIENT
  Age: 33 Year
  Sex: Female

DRUGS (4)
  1. HALDOL [Suspect]
     Indication: SELF-MEDICATION
     Route: 048
  2. FENOBARBITAL [Concomitant]
  3. CLONAZEPAN [Concomitant]
  4. DIAZEPAM [Concomitant]

REACTIONS (1)
  - SYNCOPE [None]
